FAERS Safety Report 19405083 (Version 1)
Quarter: 2021Q2

REPORT INFORMATION
  Report Type: Spontaneous
  Country: US (occurrence: US)
  Receive Date: 20210611
  Receipt Date: 20210611
  Transmission Date: 20210717
  Serious: No
  Sender: FDA-Public Use
  Company Number: US-PFIZER INC-2021652116

PATIENT
  Age: 80 Year
  Sex: Female
  Weight: 97.52 kg

DRUGS (5)
  1. RAPAMUNE [Suspect]
     Active Substance: SIROLIMUS
     Dosage: 1.5 MG
  2. RAPAMUNE [Suspect]
     Active Substance: SIROLIMUS
     Dosage: 1 MG, DAILY (1 TRIANGULAR COATED TABLET BY MOUTH ONCE DAILY)
     Route: 048
  3. RAPAMUNE [Suspect]
     Active Substance: SIROLIMUS
     Indication: THROMBOCYTOPENIA
     Dosage: 1.5 MG
  4. RAPAMUNE [Suspect]
     Active Substance: SIROLIMUS
     Dosage: 2 MG
  5. RAPAMUNE [Suspect]
     Active Substance: SIROLIMUS
     Indication: APLASTIC ANAEMIA
     Dosage: 1 MG, DAILY (0.5 MG, 30 DAY SUPPLY, TAKE 2 TABLETS BY MOUTH ONCE DAILY)
     Route: 048

REACTIONS (3)
  - Body height decreased [Unknown]
  - Gait inability [Unknown]
  - Off label use [Not Recovered/Not Resolved]
